FAERS Safety Report 15904414 (Version 1)
Quarter: 2019Q1

REPORT INFORMATION
  Report Type: Spontaneous
  Country: US (occurrence: US)
  Receive Date: 20190204
  Receipt Date: 20190204
  Transmission Date: 20190417
  Serious: No
  Sender: FDA-Public Use
  Company Number: US-DRREDDYS-USA/USA/18/0102869

PATIENT
  Age: 64 Year
  Sex: Female
  Weight: 81.36 kg

DRUGS (1)
  1. SUMATRIPTAN INJECTION USP, 6 MG/0.5 ML [Suspect]
     Active Substance: SUMATRIPTAN
     Indication: MIGRAINE
     Dosage: 6MG/0.5ML
     Route: 065

REACTIONS (4)
  - Musculoskeletal stiffness [Recovered/Resolved]
  - Contusion [Recovered/Resolved]
  - Fall [Unknown]
  - Product complaint [Unknown]

NARRATIVE: CASE EVENT DATE: 20180720
